FAERS Safety Report 21643447 (Version 1)
Quarter: 2022Q4

REPORT INFORMATION
  Report Type: Spontaneous
  Country: GB (occurrence: GB)
  Receive Date: 20221125
  Receipt Date: 20221125
  Transmission Date: 20230112
  Serious: Yes (Other)
  Sender: FDA-Public Use
  Company Number: GB-ELI_LILLY_AND_COMPANY-GB202211011493

PATIENT
  Sex: Male

DRUGS (1)
  1. BARICITINIB [Suspect]
     Active Substance: BARICITINIB
     Indication: Dermatitis atopic
     Dosage: 4 MG, UNKNOWN
     Route: 048

REACTIONS (9)
  - Secretion discharge [Unknown]
  - Wheezing [Unknown]
  - Dry skin [Unknown]
  - Erythema [Unknown]
  - Peripheral swelling [Unknown]
  - Swelling [Unknown]
  - Ear swelling [Unknown]
  - Eye swelling [Unknown]
  - Swelling face [Unknown]

NARRATIVE: CASE EVENT DATE: 20221114
